FAERS Safety Report 4485371-2 (Version None)
Quarter: 2004Q4

REPORT INFORMATION
  Report Type: 
  Country: None (occurrence: None)
  Receive Date: 20041021
  Receipt Date: 20041007
  Transmission Date: 20050328
  Serious: Yes (Other)
  Sender: FDA-Public Use
  Company Number: K200401564

PATIENT
  Age: 72 Year
  Sex: Female
  Weight: 56.7 kg

DRUGS (7)
  1. LEVOXYL [Suspect]
     Indication: HYPOTHYROIDISM
     Dosage: 125 MCG, QD, ORAL; ORAL; 88 MCG, QD, ORAL
     Route: 048
     Dates: end: 20030901
  2. LEVOXYL [Suspect]
     Indication: HYPOTHYROIDISM
     Dosage: 125 MCG, QD, ORAL; ORAL; 88 MCG, QD, ORAL
     Route: 048
     Dates: start: 20030901, end: 20040901
  3. LEVOXYL [Suspect]
     Indication: HYPOTHYROIDISM
     Dosage: 125 MCG, QD, ORAL; ORAL; 88 MCG, QD, ORAL
     Route: 048
     Dates: start: 20040901
  4. CARDIZEM [Concomitant]
  5. MOBIC [Concomitant]
  6. VIACTIV (CALCIUM, COLECALCIFEROL) TABLET [Concomitant]
  7. MULTIVITAMIN   LAPPE  (VITAMINS NOS) [Concomitant]

REACTIONS (12)
  - ALOPECIA [None]
  - ATRIAL FIBRILLATION [None]
  - BLOOD THYROID STIMULATING HORMONE DECREASED [None]
  - BLOOD THYROID STIMULATING HORMONE INCREASED [None]
  - CONDITION AGGRAVATED [None]
  - DRUG INEFFECTIVE [None]
  - DYSPNOEA EXERTIONAL [None]
  - FEELING JITTERY [None]
  - OVERDOSE [None]
  - SKIN DISORDER [None]
  - THYROID FUNCTION TEST ABNORMAL [None]
  - VISION BLURRED [None]
